FAERS Safety Report 8015801-0 (Version None)
Quarter: 2011Q4

REPORT INFORMATION
  Report Type: 
  Country: None (occurrence: None)
  Receive Date: 20111230
  Receipt Date: 20111221
  Transmission Date: 20120403
  Serious: Yes (Other)
  Sender: FDA-Public Use
  Company Number: US-SHIRE-ALL1-2011-05086

PATIENT
  Sex: Male
  Weight: 72.562 kg

DRUGS (6)
  1. VYVANSE [Suspect]
     Indication: PRODUCT USED FOR UNKNOWN INDICATION
     Dosage: 60 MG, 2X/DAY:BID
     Route: 048
     Dates: start: 20090101
  2. OMEPRAZOLE [Concomitant]
     Dosage: 60 MG, UNKNOWN
     Route: 048
  3. HYDROCODONE BITARTRATE [Concomitant]
     Indication: BACK PAIN
     Dosage: UNK
     Route: 048
  4. VITAMIN C                          /00008001/ [Suspect]
     Indication: PRODUCT USED FOR UNKNOWN INDICATION
     Dosage: UNK, UNKNOWN
     Route: 048
  5. MICARDIS [Concomitant]
     Indication: BLOOD PRESSURE
     Dosage: 40 MG, 1X/DAY:QD
     Route: 048
  6. OMEPRAZOLE [Concomitant]
     Indication: GASTROOESOPHAGEAL REFLUX DISEASE
     Dosage: 40 MG, 1X/DAY:QD
     Route: 048

REACTIONS (12)
  - DRUG INTERACTION [None]
  - RASH [None]
  - DRUG EFFECT DELAYED [None]
  - OVERDOSE [None]
  - NASOPHARYNGITIS [None]
  - GASTROOESOPHAGEAL REFLUX DISEASE [None]
  - EPISTAXIS [None]
  - INAPPROPRIATE SCHEDULE OF DRUG ADMINISTRATION [None]
  - PRODUCT QUALITY ISSUE [None]
  - PROSTATE CANCER [None]
  - PULMONARY CONGESTION [None]
  - DRUG EFFECT DECREASED [None]
